FAERS Safety Report 10385298 (Version 1)
Quarter: 2014Q3

REPORT INFORMATION
  Report Type: Spontaneous
  Country: US (occurrence: US)
  Receive Date: 20140814
  Receipt Date: 20140814
  Transmission Date: 20150326
  Serious: Yes (Hospitalization)
  Sender: FDA-Public Use
  Company Number: US-BAYER-2014-119169

PATIENT
  Age: 41 Year
  Sex: Male
  Weight: 100 kg

DRUGS (1)
  1. BAYER GENUINE ASPIRIN [Suspect]
     Active Substance: ASPIRIN
     Indication: ARTHRALGIA
     Dosage: 2 DF, ONCE
     Route: 048
     Dates: start: 1999, end: 1999

REACTIONS (2)
  - Drug hypersensitivity [Not Recovered/Not Resolved]
  - Dyspnoea [Recovered/Resolved]

NARRATIVE: CASE EVENT DATE: 1999
